FAERS Safety Report 23663765 (Version 1)
Quarter: 2024Q1

REPORT INFORMATION
  Report Type: Spontaneous
  Country: CA (occurrence: CA)
  Receive Date: 20240322
  Receipt Date: 20240322
  Transmission Date: 20240410
  Serious: Yes (Other)
  Sender: FDA-Public Use
  Company Number: CA-PFIZER INC-202200537959

PATIENT
  Age: 46 Year
  Sex: Female
  Weight: 82 kg

DRUGS (17)
  1. RUXIENCE [Suspect]
     Active Substance: RITUXIMAB-PVVR
     Indication: Lupus vasculitis
     Dosage: 1 G, EVERY 2 WEEKS, 2 DOSES
     Route: 042
     Dates: start: 20220606
  2. RUXIENCE [Suspect]
     Active Substance: RITUXIMAB-PVVR
     Indication: Haemolytic anaemia
     Dosage: 1 G, EVERY 2 WEEKS, 2 DOSES
     Route: 042
     Dates: start: 20220606, end: 20220623
  3. RUXIENCE [Suspect]
     Active Substance: RITUXIMAB-PVVR
     Indication: Granulomatosis with polyangiitis
     Dosage: 1000 MG 2 DOSES DAY 1 AND DAY 15 (SUBSEQUENT TREATMENT)
     Route: 042
     Dates: start: 20221220
  4. RUXIENCE [Suspect]
     Active Substance: RITUXIMAB-PVVR
     Dosage: 1000 MG 2 DOSES DAY 1 AND DAY 15 (SUBSEQUENT TREATMENT)
     Route: 042
     Dates: start: 20221220, end: 20230112
  5. RUXIENCE [Suspect]
     Active Substance: RITUXIMAB-PVVR
     Dosage: 1000 MG 2 DOSES DAY 1 AND DAY 15
     Route: 042
     Dates: start: 20230112
  6. RUXIENCE [Suspect]
     Active Substance: RITUXIMAB-PVVR
     Dosage: 1000 MG, DAY 1 AND DAY 15
     Route: 042
     Dates: start: 20230711
  7. RUXIENCE [Suspect]
     Active Substance: RITUXIMAB-PVVR
     Dosage: 1000 MG, AFTER 2 WEEKS AND 1 DAY
     Route: 042
     Dates: start: 20230726
  8. AZATHIOPRINE [Concomitant]
     Active Substance: AZATHIOPRINE
     Indication: Vomiting
     Dosage: UNK
  9. BENLYSTA [Concomitant]
     Active Substance: BELIMUMAB
     Dosage: 600 MG, (ONCE IN THREE WEEK)
     Route: 065
     Dates: start: 2015
  10. MEDROL [Concomitant]
     Active Substance: METHYLPREDNISOLONE
     Indication: Premedication
     Dosage: 4 MG, 1X/DAY
     Route: 065
  11. MEDROL [Concomitant]
     Active Substance: METHYLPREDNISOLONE
     Dosage: UNK
     Dates: start: 20230726, end: 20230726
  12. METHOTREXATE [Concomitant]
     Active Substance: METHOTREXATE
     Indication: Mouth ulceration
     Dosage: 1 DF, DOSAGE INFO: UNKNOWN
     Route: 065
  13. METHYLPREDNISOLONE [Concomitant]
     Active Substance: METHYLPREDNISOLONE
     Indication: Premedication
     Dosage: 8 MG, 1X/DAY
     Route: 065
  14. METHYLPREDNISOLONE [Concomitant]
     Active Substance: METHYLPREDNISOLONE
     Dosage: UNK
     Dates: start: 20230711, end: 20230711
  15. METHYLPREDNISOLONE [Concomitant]
     Active Substance: METHYLPREDNISOLONE
     Dosage: UNK
     Dates: start: 20230726, end: 20230726
  16. PLAQUENIL [Concomitant]
     Active Substance: HYDROXYCHLOROQUINE SULFATE
     Indication: Psoriasis
     Dosage: UNK
  17. PREDNISONE [Concomitant]
     Active Substance: PREDNISONE
     Indication: Swelling face
     Dosage: UNK

REACTIONS (12)
  - Lower respiratory tract infection [Recovering/Resolving]
  - Hypertension [Recovering/Resolving]
  - Abdominal hernia [Unknown]
  - Cough [Recovering/Resolving]
  - Feeling cold [Recovered/Resolved]
  - Nail discolouration [Not Recovered/Not Resolved]
  - Sinus disorder [Recovered/Resolved]
  - Haemoglobin decreased [Not Recovered/Not Resolved]
  - Intentional product misuse [Unknown]
  - Off label use [Unknown]
  - Intentional product use issue [Unknown]
  - Off label use [Unknown]

NARRATIVE: CASE EVENT DATE: 20221201
